FAERS Safety Report 6945476-0 (Version None)
Quarter: 2010Q3

REPORT INFORMATION
  Report Type: 
  Country: None (occurrence: None)
  Receive Date: 20100827
  Receipt Date: 20100826
  Transmission Date: 20110219
  Serious: Yes (Death, Life-Threatening, Hospitalization)
  Sender: FDA-Public Use
  Company Number: GXKR2010DE06448

PATIENT
  Age: 84 Year
  Sex: Female

DRUGS (12)
  1. TORSEMIDE [Suspect]
     Indication: HYPERTENSION
     Dosage: 20 MG, BID
     Route: 048
     Dates: start: 20080101, end: 20100513
  2. ENALAPRIL MALEATE [Interacting]
     Indication: HYPERTENSION
     Dosage: 20 MG, BID
     Route: 048
     Dates: start: 20030101, end: 20100513
  3. XIPAMID HEXAL (NGX) [Interacting]
     Indication: HYPERTENSION
     Dosage: 20 MG, QD
     Route: 048
     Dates: start: 20100201, end: 20100513
  4. NORVASC [Suspect]
     Indication: HYPERTENSION
     Dosage: 5 MG, BID
     Route: 048
     Dates: start: 20020101, end: 20100513
  5. METOPROLOL TARTRATE [Suspect]
     Indication: HYPERTENSION
     Dosage: 100-0-50 MG
     Route: 048
     Dates: start: 20000101
  6. ASPIRIN [Concomitant]
     Indication: CORONARY ARTERY DISEASE
     Dosage: 100 MG, QD
     Route: 048
     Dates: start: 20030101
  7. FENTANYL CITRATE [Concomitant]
     Indication: OSTEOARTHRITIS
     Dosage: 12.5 UG/HR, UNK
     Route: 062
  8. PENTAERYTHRITOL TETRANITRATE [Concomitant]
     Indication: CORONARY ARTERY DISEASE
     Dosage: 80 MG, TID
     Route: 048
     Dates: start: 20030101
  9. HAEMOPROTECT [Concomitant]
     Indication: IRON DEFICIENCY
     Dosage: 100 MG, BID
     Route: 048
  10. NOVAMINSULFON ^BRAUN^ [Concomitant]
     Indication: OSTEOARTHRITIS
     Dosage: 30 GTT, TID
  11. PLAVIX [Concomitant]
     Indication: CORONARY ARTERY DISEASE
     Dosage: 75 MG, QD
     Route: 048
     Dates: start: 20030101, end: 20100513
  12. FALITHROM ^HEXAL^ [Concomitant]
     Indication: PERIPHERAL ARTERIAL OCCLUSIVE DISEASE
     Dosage: DOSE DEPENDING ON QUICK'S VALUE
     Route: 048
     Dates: end: 20100514

REACTIONS (1)
  - RENAL FAILURE ACUTE [None]
